FAERS Safety Report 9703315 (Version 1)
Quarter: 2013Q4

REPORT INFORMATION
  Report Type: Spontaneous
  Country: AU (occurrence: AU)
  Receive Date: 20131122
  Receipt Date: 20131122
  Transmission Date: 20140711
  Serious: Yes (Other)
  Sender: FDA-Public Use
  Company Number: AU-009507513-1311AUS006855

PATIENT
  Age: 80 Year
  Sex: Male

DRUGS (3)
  1. TEMOZOLOMIDE [Suspect]
     Indication: NEUROENDOCRINE TUMOUR
     Route: 048
  2. CAPECITABINE [Suspect]
     Indication: NEUROENDOCRINE TUMOUR
  3. SANDOSTATIN [Suspect]
     Indication: NEUROENDOCRINE TUMOUR

REACTIONS (1)
  - Malignant neoplasm progression [Unknown]
